FAERS Safety Report 18504490 (Version 3)
Quarter: 2020Q4

REPORT INFORMATION
  Report Type: Spontaneous
  Country: FR (occurrence: FR)
  Receive Date: 20201114
  Receipt Date: 20201211
  Transmission Date: 20210114
  Serious: Yes (Hospitalization)
  Sender: FDA-Public Use
  Company Number: NVSC2020FR299136

PATIENT
  Age: 29 Year
  Sex: Male
  Weight: 29 kg

DRUGS (3)
  1. KETOPROFEN. [Suspect]
     Active Substance: KETOPROFEN
     Indication: TOXICITY TO VARIOUS AGENTS
     Dosage: 800 MG, ONCE/SINGLE (TOTAL)
     Route: 048
     Dates: start: 20200819, end: 20200819
  2. CETIRIZINE DIHYDROCHLORIDE [Suspect]
     Active Substance: CETIRIZINE HYDROCHLORIDE
     Indication: TOXICITY TO VARIOUS AGENTS
     Dosage: 25 MG, ONCE/SINGLE (TOTAL)
     Route: 048
     Dates: start: 20200819, end: 20200819
  3. MIRTAZAPINE. [Suspect]
     Active Substance: MIRTAZAPINE
     Indication: TOXICITY TO VARIOUS AGENTS
     Dosage: 120 MG, ONCE/SINGLE (TOTAL)
     Route: 048
     Dates: start: 20200819, end: 20200819

REACTIONS (4)
  - Somnolence [Recovered/Resolved]
  - Overdose [Unknown]
  - Disorientation [Recovered/Resolved]
  - Toxicity to various agents [Unknown]

NARRATIVE: CASE EVENT DATE: 20200819
